FAERS Safety Report 14882770 (Version 1)
Quarter: 2018Q2

REPORT INFORMATION
  Report Type: Report from Study
  Country: US (occurrence: US)
  Receive Date: 20180511
  Receipt Date: 20180511
  Transmission Date: 20180711
  Serious: Yes (Hospitalization)
  Sender: FDA-Public Use
  Company Number: US-TEVA-2018-US-890749

PATIENT

DRUGS (1)
  1. COPAXONE [Suspect]
     Active Substance: GLATIRAMER ACETATE
     Indication: MULTIPLE SCLEROSIS
     Route: 058
     Dates: start: 20170307, end: 20171115

REACTIONS (7)
  - Paraesthesia [Unknown]
  - Drug ineffective [Unknown]
  - Pain [Unknown]
  - Throat tightness [Unknown]
  - Hypoaesthesia [Unknown]
  - Limb discomfort [Unknown]
  - Multiple sclerosis relapse [Unknown]
